FAERS Safety Report 7420717-4 (Version None)
Quarter: 2011Q2

REPORT INFORMATION
  Report Type: 
  Country: None (occurrence: None)
  Receive Date: 20110418
  Receipt Date: 20110222
  Transmission Date: 20111010
  Serious: Yes (Hospitalization)
  Sender: FDA-Public Use
  Company Number: US-BAYER-201034725NA

PATIENT
  Age: 24 Year
  Sex: Female
  Weight: 101.59 kg

DRUGS (7)
  1. PERCOCET [Concomitant]
  2. SINGULAIR [Concomitant]
  3. YAZ [Suspect]
     Indication: MENSTRUATION IRREGULAR
     Dosage: UNK
     Route: 048
     Dates: end: 20070723
  4. CONCERTA [Concomitant]
  5. ALBUTEROL [Concomitant]
  6. ORTHO TRI-CYCLEN [Concomitant]
     Dosage: UNK
     Dates: start: 20070101
  7. LOVENOX [Concomitant]
     Dosage: UNK
     Dates: start: 20081001

REACTIONS (7)
  - PAIN [None]
  - HEART RATE INCREASED [None]
  - PULMONARY EMBOLISM [None]
  - DEEP VEIN THROMBOSIS [None]
  - VENOUS INSUFFICIENCY [None]
  - METRORRHAGIA [None]
  - OEDEMA PERIPHERAL [None]
